FAERS Safety Report 4408018-X (Version None)
Quarter: 2004Q3

REPORT INFORMATION
  Report Type: 
  Country: None (occurrence: None)
  Receive Date: 20040726
  Receipt Date: 20040702
  Transmission Date: 20050211
  Serious: Yes (Hospitalization, Other)
  Sender: FDA-Public Use
  Company Number: JP-MERCK-0407USA00487

PATIENT
  Age: 53 Year
  Sex: Male

DRUGS (21)
  1. [THERAPY UNSPECIFIED] [Concomitant]
     Route: 042
     Dates: start: 20040702
  2. [THERAPY UNSPECIFIED] [Concomitant]
     Route: 042
     Dates: start: 20040615, end: 20040623
  3. [THERAPY UNSPECIFIED] [Concomitant]
     Route: 042
     Dates: start: 20040615, end: 20040623
  4. [THERAPY UNSPECIFIED] [Concomitant]
     Route: 042
     Dates: start: 20040624, end: 20040624
  5. [THERAPY UNSPECIFIED] [Concomitant]
     Route: 042
     Dates: start: 20040625, end: 20040630
  6. [THERAPY UNSPECIFIED] [Concomitant]
     Route: 042
     Dates: start: 20040706
  7. [THERAPY UNSPECIFIED] [Concomitant]
     Route: 042
     Dates: start: 20040701
  8. ADONA [Concomitant]
     Route: 048
     Dates: start: 20040603, end: 20040605
  9. CEFOTIAM HYDROCHLORIDE [Concomitant]
     Route: 048
     Dates: start: 20040603, end: 20040605
  10. CEFOTIAM HYDROCHLORIDE [Concomitant]
     Route: 048
     Dates: start: 20040609, end: 20040610
  11. CEFOTIAM HYDROCHLORIDE [Concomitant]
     Route: 048
     Dates: start: 20040615, end: 20040621
  12. CEFOTIAM HYDROCHLORIDE [Concomitant]
     Route: 048
     Dates: start: 20040705
  13. SOLITA T-3 [Concomitant]
     Route: 042
     Dates: start: 20040615, end: 20040623
  14. SOLITA T-3 [Concomitant]
     Route: 042
     Dates: start: 20040609, end: 20040610
  15. SOLITA T-1 [Concomitant]
     Route: 042
     Dates: start: 20040615, end: 20040623
  16. HARTMANN'S SOLUTION [Concomitant]
     Route: 042
     Dates: start: 20040609, end: 20040610
  17. ELECTROLYTES (UNSPECIFIED) [Concomitant]
     Route: 042
     Dates: start: 20040609, end: 20040609
  18. PEPCID [Suspect]
     Indication: INTESTINAL OBSTRUCTION
     Route: 042
     Dates: start: 20040615, end: 20040701
  19. LEVOFLOXACIN [Concomitant]
     Route: 048
     Dates: start: 20040414
  20. FLIVAS [Concomitant]
     Route: 048
     Dates: start: 20040421, end: 20040505
  21. HARNAL [Concomitant]
     Route: 048
     Dates: start: 20040506, end: 20040608

REACTIONS (1)
  - RHABDOMYOLYSIS [None]
